FAERS Safety Report 8585945-3 (Version None)
Quarter: 2012Q3

REPORT INFORMATION
  Report Type: 
  Country: None (occurrence: None)
  Receive Date: 20120810
  Receipt Date: 20120802
  Transmission Date: 20120928
  Serious: No
  Sender: FDA-Public Use
  Company Number: US-PFIZER INC-2012188312

PATIENT
  Age: 68 Year
  Sex: Female
  Weight: 77.098 kg

DRUGS (3)
  1. ESTRING [Suspect]
     Indication: VULVOVAGINAL DISCOMFORT
     Dosage: 2 MG, EVERY 3 MONTHS
     Route: 067
  2. ASPIRIN [Concomitant]
     Dosage: UNK
  3. ESTRING [Suspect]
     Indication: VULVOVAGINAL DRYNESS

REACTIONS (3)
  - VULVOVAGINAL DRYNESS [None]
  - PRODUCT QUALITY ISSUE [None]
  - CIRCUMSTANCE OR INFORMATION CAPABLE OF LEADING TO MEDICATION ERROR [None]
